FAERS Safety Report 9882450 (Version 1)
Quarter: 2014Q1

REPORT INFORMATION
  Report Type: Spontaneous
  Country: US (occurrence: US)
  Receive Date: 20140207
  Receipt Date: 20140207
  Transmission Date: 20141002
  Serious: No
  Sender: FDA-Public Use
  Company Number: US-PFIZER INC-2014034888

PATIENT
  Age: 55 Year
  Sex: Female
  Weight: 53.5 kg

DRUGS (1)
  1. PREMARIN [Suspect]
     Indication: DRY SKIN PROPHYLAXIS
     Dosage: UNK, 2X/DAY

REACTIONS (3)
  - Off label use [Unknown]
  - Dry skin [Unknown]
  - Therapeutic response unexpected [Unknown]
